FAERS Safety Report 6764645-6 (Version None)
Quarter: 2010Q2

REPORT INFORMATION
  Report Type: 
  Country: None (occurrence: None)
  Receive Date: 20100610
  Receipt Date: 20100531
  Transmission Date: 20101027
  Serious: Yes (Other)
  Sender: FDA-Public Use
  Company Number: BR-ABBOTT-09P-020-0587358-00

PATIENT
  Sex: Male
  Weight: 50 kg

DRUGS (7)
  1. HUMIRA [Suspect]
     Indication: JUVENILE ARTHRITIS
     Route: 058
     Dates: start: 20081001
  2. HUMIRA [Suspect]
  3. ARCOXIA [Concomitant]
     Indication: PAIN
     Dosage: 1 TABLET WHEN IT IS NECESSARY
     Route: 048
     Dates: start: 20040101
  4. METHOTREXATE [Concomitant]
     Indication: RHEUMATOID ARTHRITIS
     Route: 048
  5. ALENDRONATE SODIUM [Concomitant]
     Indication: RHEUMATOID ARTHRITIS
     Route: 048
  6. CALCIUM CARBONATE [Concomitant]
     Indication: BONE DISORDER
     Route: 048
  7. PARACETAMOL [Concomitant]
     Indication: PAIN
     Route: 048

REACTIONS (17)
  - BLOOD CHOLESTEROL INCREASED [None]
  - BLOOD PRESSURE FLUCTUATION [None]
  - DRY THROAT [None]
  - DYSPNOEA [None]
  - EAR PAIN [None]
  - INFLUENZA [None]
  - INJECTION SITE PAIN [None]
  - INJECTION SITE PRURITUS [None]
  - INJECTION SITE SWELLING [None]
  - INSOMNIA [None]
  - JOINT ANKYLOSIS [None]
  - JOINT STIFFNESS [None]
  - MASS [None]
  - PAIN [None]
  - PRODUCTIVE COUGH [None]
  - PRURITUS [None]
  - SKIN INDURATION [None]
